FAERS Safety Report 11210666 (Version 2)
Quarter: 2016Q2

REPORT INFORMATION
  Report Type: Spontaneous
  Country: US (occurrence: US)
  Receive Date: 20150622
  Receipt Date: 20160627
  Transmission Date: 20160815
  Serious: No
  Sender: FDA-Public Use
  Company Number: US-SA-2015SA018762

PATIENT
  Age: 87 Year
  Sex: Female
  Weight: 82.8 kg

DRUGS (14)
  1. METOPROLOL. [Concomitant]
     Active Substance: METOPROLOL
     Indication: ATRIAL FIBRILLATION
     Dates: start: 20130611
  2. GLIPIZIDE. [Concomitant]
     Active Substance: GLIPIZIDE
     Indication: TYPE 2 DIABETES MELLITUS
     Dates: start: 20120223
  3. DIAZEPAM. [Concomitant]
     Active Substance: DIAZEPAM
     Indication: ANXIETY
     Dates: start: 20100209
  4. NEXIUM [Concomitant]
     Active Substance: ESOMEPRAZOLE MAGNESIUM
     Indication: GASTROOESOPHAGEAL REFLUX DISEASE
     Dates: start: 20100205
  5. HECTOROL [Suspect]
     Active Substance: DOXERCALCIFEROL
     Indication: END STAGE RENAL DISEASE
     Route: 042
     Dates: start: 20140517, end: 2015
  6. HECTOROL [Suspect]
     Active Substance: DOXERCALCIFEROL
     Indication: BLOOD PARATHYROID HORMONE INCREASED
     Route: 042
     Dates: start: 20140517, end: 2015
  7. FUROSEMIDE. [Concomitant]
     Active Substance: FUROSEMIDE
     Indication: HYPERTENSION
     Dosage: 80 MG IN AM AND 40 MG IN PM
     Dates: start: 20111119
  8. HECTOROL [Suspect]
     Active Substance: DOXERCALCIFEROL
     Indication: END STAGE RENAL DISEASE
     Route: 042
     Dates: start: 20150824
  9. HECTOROL [Suspect]
     Active Substance: DOXERCALCIFEROL
     Indication: BLOOD PARATHYROID HORMONE INCREASED
     Route: 042
     Dates: start: 20150824
  10. HECTOROL [Suspect]
     Active Substance: DOXERCALCIFEROL
     Indication: END STAGE RENAL DISEASE
     Dosage: START DATE: 01-JAN-2014
     Route: 042
     Dates: start: 2014, end: 2014
  11. HECTOROL [Suspect]
     Active Substance: DOXERCALCIFEROL
     Indication: BLOOD PARATHYROID HORMONE INCREASED
     Dosage: START DATE: 01-JAN-2014
     Route: 042
     Dates: start: 2014, end: 2014
  12. HECTOROL [Suspect]
     Active Substance: DOXERCALCIFEROL
     Indication: BLOOD PARATHYROID HORMONE INCREASED
     Dosage: 32 MCG/WEEK
     Route: 042
  13. HECTOROL [Suspect]
     Active Substance: DOXERCALCIFEROL
     Indication: END STAGE RENAL DISEASE
     Dosage: 32 MCG/WEEK
     Route: 042
  14. NORCO [Concomitant]
     Active Substance: ACETAMINOPHEN\HYDROCODONE BITARTRATE
     Indication: ARTHRITIS
     Dates: start: 20130611

REACTIONS (1)
  - Drug ineffective [Unknown]

NARRATIVE: CASE EVENT DATE: 20150205
